FAERS Safety Report 24346146 (Version 1)
Quarter: 2024Q3

REPORT INFORMATION
  Report Type: Spontaneous
  Country: US (occurrence: US)
  Receive Date: 20240921
  Receipt Date: 20240921
  Transmission Date: 20241017
  Serious: No
  Sender: AUROBINDO
  Company Number: US-AUROBINDO-AUR-APL-2024-012664

PATIENT
  Age: 87 Year
  Sex: Female

DRUGS (1)
  1. ALENDRONATE SODIUM [Suspect]
     Active Substance: ALENDRONATE SODIUM
     Indication: Product used for unknown indication
     Dosage: UNK
     Route: 065
     Dates: start: 20240309, end: 20240309

REACTIONS (6)
  - Arthralgia [Recovering/Resolving]
  - Cyanosis [Recovering/Resolving]
  - Gait disturbance [Recovering/Resolving]
  - Illness [Recovering/Resolving]
  - Product substitution issue [Unknown]
  - Product packaging difficult to open [Unknown]
